FAERS Safety Report 4462519-7 (Version None)
Quarter: 2004Q3

REPORT INFORMATION
  Report Type: 
  Country: None (occurrence: None)
  Receive Date: 20040924
  Receipt Date: 20040826
  Transmission Date: 20050211
  Serious: Yes (Hospitalization)
  Sender: FDA-Public Use
  Company Number: 200408316

PATIENT
  Age: 17 Year
  Sex: Male

DRUGS (1)
  1. BOTOX [Suspect]
     Indication: DROOLING
     Dosage: 150 UNITS PRN OTHER
     Dates: start: 20040729

REACTIONS (2)
  - DYSPHAGIA [None]
  - MEDICATION ERROR [None]
